FAERS Safety Report 18203393 (Version 1)
Quarter: 2020Q3

REPORT INFORMATION
  Report Type: Spontaneous
  Country: US (occurrence: US)
  Receive Date: 20200827
  Receipt Date: 20200827
  Transmission Date: 20201103
  Serious: No
  Sender: FDA-Public Use
  Company Number: US-ELI_LILLY_AND_COMPANY-US202008009933

PATIENT
  Sex: Female

DRUGS (5)
  1. PREGABALIN. [Concomitant]
     Active Substance: PREGABALIN
     Indication: CARDIAC DISORDER
     Dosage: 25 MG, UNKNOWN
     Route: 065
  2. HUMALOG [Suspect]
     Active Substance: INSULIN LISPRO
     Indication: TYPE 2 DIABETES MELLITUS
     Dosage: 11 U, EACH MORNING
     Route: 058
     Dates: start: 202006
  3. HUMALOG [Suspect]
     Active Substance: INSULIN LISPRO
     Dosage: 15 U, TID(NOON,SUPPER AND NIGHT)
     Route: 058
     Dates: start: 202006
  4. LANTUS [Concomitant]
     Active Substance: INSULIN GLARGINE
     Indication: TYPE 2 DIABETES MELLITUS
     Dosage: UNK UNK, PRN
  5. ROSUVASTATIN. [Concomitant]
     Active Substance: ROSUVASTATIN
     Indication: CARDIAC DISORDER
     Dosage: 5 MG, UNKNOWN
     Route: 065

REACTIONS (1)
  - Mobility decreased [Unknown]
